FAERS Safety Report 6554540-X (Version None)
Quarter: 2010Q1

REPORT INFORMATION
  Report Type: 
  Country: None (occurrence: None)
  Receive Date: 20100127
  Receipt Date: 20100116
  Transmission Date: 20100710
  Serious: Yes (Hospitalization)
  Sender: FDA-Public Use
  Company Number: PHHY2010US02682

PATIENT
  Sex: Male

DRUGS (1)
  1. EXJADE [Suspect]
     Dosage: 750 MG, QD
     Route: 048

REACTIONS (4)
  - CEREBROVASCULAR ACCIDENT [None]
  - EYE DISORDER [None]
  - EYE IRRITATION [None]
  - VISUAL IMPAIRMENT [None]
